FAERS Safety Report 17256877 (Version 1)
Quarter: 2020Q1

REPORT INFORMATION
  Report Type: Spontaneous
  Country: IT (occurrence: IT)
  Receive Date: 20200110
  Receipt Date: 20200110
  Transmission Date: 20200409
  Serious: Yes (Hospitalization, Other)
  Sender: FDA-Public Use
  Company Number: IT-SA-2020SA005582

PATIENT
  Age: 2 Year
  Sex: Female
  Weight: 14.5 kg

DRUGS (2)
  1. MYOZYME [Suspect]
     Active Substance: ALGLUCOSIDASE ALFA
     Indication: GLYCOGEN STORAGE DISEASE TYPE II
     Dosage: 15 MG/KG, QW
     Route: 042
     Dates: start: 201801
  2. SIROLIMUS. [Concomitant]
     Active Substance: SIROLIMUS
     Indication: IMMUNODEFICIENCY
     Dosage: 0.3 MG, BID
     Route: 048
     Dates: start: 201807

REACTIONS (3)
  - Bacterial sepsis [Unknown]
  - Supraventricular tachycardia [Recovered/Resolved]
  - Pyrexia [Recovered/Resolved]

NARRATIVE: CASE EVENT DATE: 20191028
